FAERS Safety Report 8214106-2 (Version None)
Quarter: 2012Q1

REPORT INFORMATION
  Report Type: 
  Country: None (occurrence: None)
  Receive Date: 20120316
  Receipt Date: 20120313
  Transmission Date: 20120608
  Serious: No
  Sender: FDA-Public Use
  Company Number: US-PFIZER INC-2012066524

PATIENT
  Sex: Female
  Weight: 68.027 kg

DRUGS (4)
  1. SIMVASTATIN [Concomitant]
     Indication: BLOOD CHOLESTEROL INCREASED
     Dosage: UNK
  2. PROTONIX [Suspect]
     Indication: GASTRIC DISORDER
     Dosage: 40 MG, 1X/DAY
     Route: 048
  3. AMLODIPINE [Concomitant]
     Indication: HYPERTENSION
     Dosage: UNK
  4. PANTOPRAZOLE [Suspect]
     Dosage: UNK

REACTIONS (3)
  - GASTRIC DISORDER [None]
  - VOMITING [None]
  - MALAISE [None]
